FAERS Safety Report 8323208-1 (Version None)
Quarter: 2012Q2

REPORT INFORMATION
  Report Type: 
  Country: None (occurrence: None)
  Receive Date: 20120430
  Receipt Date: 20120420
  Transmission Date: 20120825
  Serious: Yes (Death, Congenital Anomaly)
  Sender: FDA-Public Use
  Company Number: US-ABBOTT-11P-163-0842413-00

PATIENT

DRUGS (2)
  1. KALETRA [Suspect]
     Indication: MATERNAL EXPOSURE TIMING UNSPECIFIED
     Route: 064
  2. TRUVADA [Suspect]
     Indication: MATERNAL EXPOSURE TIMING UNSPECIFIED
     Route: 064

REACTIONS (6)
  - FOETAL MALFORMATION [None]
  - ABORTION INDUCED [None]
  - FOETAL EXPOSURE DURING PREGNANCY [None]
  - DYSMORPHISM [None]
  - HOLOPROSENCEPHALY [None]
  - MACROCEPHALY [None]
